FAERS Safety Report 15441776 (Version 1)
Quarter: 2018Q3

REPORT INFORMATION
  Report Type: Spontaneous
  Country: US (occurrence: US)
  Receive Date: 20180928
  Receipt Date: 20180928
  Transmission Date: 20181010
  Serious: Yes (Other)
  Sender: FDA-Public Use
  Company Number: US-LPDUSPRD-20181792

PATIENT
  Age: 60 Year

DRUGS (3)
  1. LEUCOVORIN CALCIUM INJECTION (0517?8605?25) [Suspect]
     Active Substance: LEUCOVORIN CALCIUM
     Dosage: UNKNOWN
     Route: 065
  2. 5?FU [Suspect]
     Active Substance: FLUOROURACIL
     Dosage: UNKNOWN
     Route: 065
  3. RADIATION THERAPY [Suspect]
     Active Substance: RADIATION THERAPY
     Dosage: UNKNOWN
     Route: 065

REACTIONS (2)
  - Product used for unknown indication [Unknown]
  - Myelitis [Unknown]
